FAERS Safety Report 4851941-2 (Version None)
Quarter: 2005Q4

REPORT INFORMATION
  Report Type: 
  Country: None (occurrence: None)
  Receive Date: 20051209
  Receipt Date: 20051128
  Transmission Date: 20060501
  Serious: Yes (Other)
  Sender: FDA-Public Use
  Company Number: 2005162632

PATIENT
  Age: 62 Year
  Sex: Female

DRUGS (2)
  1. XALATAN [Suspect]
     Indication: GLAUCOMA
     Dosage: 2 DROP 9 1 DROP, 1 IN 1 D), OPHTHALMIC
     Route: 047
     Dates: start: 19970101
  2. HOMEOPATHIC PREPARATION (HOMEOPATIC PREPARATION) [Concomitant]

REACTIONS (1)
  - THYROID DISORDER [None]
